FAERS Safety Report 7066036-X (Version None)
Quarter: 2010Q4

REPORT INFORMATION
  Report Type: 
  Country: None (occurrence: None)
  Receive Date: 20101027
  Receipt Date: 20101004
  Transmission Date: 20110411
  Serious: Yes (Hospitalization)
  Sender: FDA-Public Use
  Company Number: LT-AMGEN-KDC412544

PATIENT

DRUGS (8)
  1. DENOSUMAB [Suspect]
     Indication: PROSTATE CANCER
     Dosage: UNK UNK, Q4WK
     Route: 058
     Dates: start: 20080613
  2. TRAMADOL HCL [Concomitant]
     Dosage: 100 MG, TID
     Route: 048
     Dates: start: 20100126
  3. GABAPENTIN [Concomitant]
     Dosage: 300 MG, BID
     Route: 048
     Dates: start: 20100121
  4. TRIPTORELIN [Concomitant]
     Dosage: 3.75 MG, Q4WK
     Route: 030
     Dates: start: 20081128
  5. CYPROTERONE [Concomitant]
     Dosage: 50 MG, TID
     Route: 048
     Dates: start: 20081129
  6. CALCIUM [Concomitant]
  7. DIAZEPAM [Concomitant]
     Dosage: 10 MG, QD
     Route: 048
     Dates: start: 20100223
  8. FENTANYL CITRATE [Concomitant]
     Dosage: UNK UNK, UNK
     Route: 062
     Dates: start: 20100402

REACTIONS (1)
  - OSTEOMYELITIS [None]
